FAERS Safety Report 20567369 (Version 1)
Quarter: 2022Q1

REPORT INFORMATION
  Report Type: Spontaneous
  Country: US (occurrence: None)
  Receive Date: 20220308
  Receipt Date: 20220308
  Transmission Date: 20220424
  Serious: No
  Sender: FDA-Public Use
  Company Number: None

PATIENT

DRUGS (1)
  1. VANCOMYCIN HYDROCHLORIDE [Suspect]
     Active Substance: VANCOMYCIN HYDROCHLORIDE

REACTIONS (10)
  - Exposure during pregnancy [None]
  - Manufacturing issue [None]
  - Therapy cessation [None]
  - Wrong technique in product usage process [None]
  - Device computer issue [None]
  - Contraindicated product administered [None]
  - Product prescribing error [None]
  - Product administration error [None]
  - Product label issue [None]
  - Product use issue [None]
